FAERS Safety Report 26180003 (Version 1)
Quarter: 2025Q4

REPORT INFORMATION
  Report Type: Spontaneous
  Country: US (occurrence: US)
  Receive Date: 20251219
  Receipt Date: 20251219
  Transmission Date: 20260118
  Serious: No
  Sender: BAYER HEALTHCARE PHARMACEUTICALS INC.
  Company Number: US-BAYER-2025A165782

PATIENT
  Sex: Male
  Weight: 82.902 kg

DRUGS (2)
  1. NUBEQA [Suspect]
     Active Substance: DAROLUTAMIDE
     Indication: Prostate cancer
  2. DUPIXENT [Suspect]
     Active Substance: DUPILUMAB
     Indication: Prostate cancer
     Dosage: 300 MG QOW
     Route: 058

REACTIONS (1)
  - Prostatic specific antigen increased [Unknown]
